FAERS Safety Report 19293611 (Version 1)
Quarter: 2021Q2

REPORT INFORMATION
  Report Type: Spontaneous
  Country: US (occurrence: US)
  Receive Date: 20210524
  Receipt Date: 20210524
  Transmission Date: 20210717
  Serious: Yes (Death)
  Sender: FDA-Public Use
  Company Number: None

PATIENT
  Age: 73 Year
  Sex: Male
  Weight: 94 kg

DRUGS (1)
  1. REMDESIVIR (REMDESIVIR 100MG/VIAL INJ) [Suspect]
     Active Substance: REMDESIVIR
     Indication: UPPER RESPIRATORY TRACT INFECTION
     Route: 042
     Dates: start: 20200924, end: 20201004

REACTIONS (17)
  - Renal failure [None]
  - Palliative care [None]
  - Candida infection [None]
  - Pneumomediastinum [None]
  - Mechanical ventilation complication [None]
  - Endotracheal intubation [None]
  - Ventricular tachycardia [None]
  - Cardio-respiratory arrest [None]
  - Atrial flutter [None]
  - Heart rate decreased [None]
  - Pulmonary congestion [None]
  - Pulse absent [None]
  - Oxygen saturation decreased [None]
  - Acute myocardial infarction [None]
  - Septic shock [None]
  - Acute kidney injury [None]
  - Pneumothorax [None]

NARRATIVE: CASE EVENT DATE: 20201008
